FAERS Safety Report 21895265 (Version 1)
Quarter: 2023Q1

REPORT INFORMATION
  Report Type: Spontaneous
  Country: US (occurrence: US)
  Receive Date: 20230123
  Receipt Date: 20230123
  Transmission Date: 20230418
  Serious: No
  Sender: FDA-Public Use
  Company Number: US-SA-SAC20230118000831

PATIENT
  Sex: Male

DRUGS (5)
  1. DUPIXENT [Suspect]
     Active Substance: DUPILUMAB
     Indication: Dermatitis atopic
  2. OPZELURA [Concomitant]
     Active Substance: RUXOLITINIB PHOSPHATE
  3. EUCRISA [Concomitant]
     Active Substance: CRISABOROLE
     Indication: Rash
     Dosage: HAND RASH EXTERNALLY QD TO BID PRN
  4. RINVOQ [Concomitant]
     Active Substance: UPADACITINIB
  5. CIBINQO [Concomitant]
     Active Substance: ABROCITINIB
     Dosage: 100 MG, QD

REACTIONS (1)
  - Drug ineffective [Unknown]
